FAERS Safety Report 7637857-7 (Version None)
Quarter: 2011Q3

REPORT INFORMATION
  Report Type: 
  Country: None (occurrence: None)
  Receive Date: 20110727
  Receipt Date: 20110721
  Transmission Date: 20111222
  Serious: Yes (Death)
  Sender: FDA-Public Use
  Company Number: US-JNJFOC-20110709411

PATIENT
  Sex: Male
  Weight: 113.85 kg

DRUGS (15)
  1. ENALAPRIL MALEATE [Concomitant]
     Indication: HYPERTENSION
     Route: 048
     Dates: end: 20110712
  2. TRAMADOL HCL [Concomitant]
     Indication: PAIN
     Route: 048
     Dates: end: 20110712
  3. FLOMAX [Concomitant]
     Indication: PROSTATIC DISORDER
     Route: 048
     Dates: end: 20110712
  4. SORIATANE [Concomitant]
     Indication: PSORIASIS
     Route: 048
     Dates: end: 20110712
  5. VITAMIN D [Concomitant]
     Indication: MEDICAL DIET
     Route: 048
     Dates: end: 20110712
  6. POTASSIUM CHLORIDE [Concomitant]
     Indication: ELECTROLYTE SUBSTITUTION THERAPY
     Route: 048
     Dates: end: 20110712
  7. ZAROXOLYN [Concomitant]
     Indication: HYPERTENSION
     Route: 048
     Dates: end: 20110712
  8. SIMVASTATIN [Concomitant]
     Indication: HYPERLIPIDAEMIA
     Route: 048
     Dates: end: 20110712
  9. DETROL LA [Concomitant]
     Indication: URINARY RETENTION
     Route: 048
     Dates: end: 20110712
  10. STELARA [Suspect]
     Indication: PSORIASIS
     Route: 058
     Dates: start: 20110621
  11. TRAZODONE HCL [Concomitant]
     Indication: SLEEP DISORDER
     Route: 048
     Dates: end: 20110712
  12. DICLOFENAC SODIUM [Concomitant]
     Indication: INFLAMMATION
     Route: 048
     Dates: end: 20110712
  13. GLIPIZIDE [Concomitant]
     Indication: DIABETES MELLITUS
     Route: 048
     Dates: end: 20110712
  14. LASIX [Concomitant]
     Indication: DIURETIC THERAPY
     Route: 048
     Dates: end: 20110712
  15. METFORMIN HCL [Concomitant]
     Indication: DIABETES MELLITUS
     Route: 048
     Dates: end: 20110712

REACTIONS (1)
  - ACUTE MYOCARDIAL INFARCTION [None]
